FAERS Safety Report 7478772-1 (Version None)
Quarter: 2011Q2

REPORT INFORMATION
  Report Type: 
  Country: None (occurrence: None)
  Receive Date: 20110513
  Receipt Date: 20110509
  Transmission Date: 20111010
  Serious: Yes (Hospitalization, Other)
  Sender: FDA-Public Use
  Company Number: BR-ROCHE-708802

PATIENT
  Sex: Female
  Weight: 50 kg

DRUGS (16)
  1. ACETAMINOPHEN [Concomitant]
  2. CAPTOPRIL [Concomitant]
     Indication: HYPERTENSION
  3. ACTEMRA [Suspect]
     Route: 042
     Dates: start: 20101201, end: 20101201
  4. ACTEMRA [Suspect]
     Route: 042
     Dates: start: 20091001, end: 20091001
  5. ACTEMRA [Suspect]
     Route: 042
     Dates: start: 20091124
  6. CORTISONE [Concomitant]
  7. ACTEMRA [Suspect]
     Route: 042
     Dates: start: 20101001
  8. PREDSIM [Concomitant]
  9. ATENOLOL [Concomitant]
  10. CAPTOPRIL [Concomitant]
  11. ACTEMRA [Suspect]
     Indication: RHEUMATOID ARTHRITIS
     Dosage: ROUTE: ENDOVENOUS, FORM: INFUSION
     Route: 042
     Dates: start: 20090917, end: 20090917
  12. ACTEMRA [Suspect]
     Route: 042
     Dates: start: 20091201
  13. ACTEMRA [Suspect]
     Route: 042
     Dates: start: 20101101
  14. ACETAMINOPHEN [Concomitant]
  15. ATENOLOL [Concomitant]
     Indication: HYPERTENSION
  16. ASPIRIN [Concomitant]

REACTIONS (5)
  - THERAPEUTIC RESPONSE DECREASED [None]
  - INFLUENZA [None]
  - ARTHROPATHY [None]
  - GASTROENTERITIS [None]
  - IMMUNODEFICIENCY [None]
